FAERS Safety Report 8371479-8 (Version None)
Quarter: 2012Q2

REPORT INFORMATION
  Report Type: 
  Country: None (occurrence: None)
  Receive Date: 20120518
  Receipt Date: 20120518
  Transmission Date: 20120825
  Serious: Yes (Other)
  Sender: FDA-Public Use
  Company Number: US-PFIZER INC-2012070046

PATIENT
  Sex: Female
  Weight: 52.6 kg

DRUGS (4)
  1. NEURONTIN [Suspect]
     Indication: BACK INJURY
     Dosage: 300 MG, 3X/DAY
     Dates: start: 20000101
  2. ZOLOFT [Suspect]
     Indication: DEPRESSION
     Dosage: 100 MG, DAILY
     Dates: start: 19850101
  3. LIPITOR [Suspect]
     Indication: BLOOD CHOLESTEROL INCREASED
     Dosage: 400 MG, DAILY
     Route: 048
     Dates: start: 20030101
  4. NEURONTIN [Suspect]
     Indication: INTERVERTEBRAL DISC PROTRUSION

REACTIONS (1)
  - BREAST CALCIFICATIONS [None]
